FAERS Safety Report 25423006 (Version 2)
Quarter: 2025Q4

REPORT INFORMATION
  Report Type: Spontaneous
  Country: US (occurrence: US)
  Receive Date: 20250611
  Receipt Date: 20251103
  Transmission Date: 20260118
  Serious: No
  Sender: RIGEL PHARMACEUTICALS
  Company Number: US-RIGEL Pharmaceuticals, INC-20250600063

PATIENT
  Sex: Female
  Weight: 58.967 kg

DRUGS (2)
  1. GAVRETO [Suspect]
     Active Substance: PRALSETINIB
     Indication: Lung neoplasm malignant
     Dosage: 400 MG, QD
     Route: 048
  2. GAVRETO [Suspect]
     Active Substance: PRALSETINIB
     Dosage: 300 MG, QD
     Route: 048
     Dates: start: 20250313

REACTIONS (4)
  - Blood urine present [Unknown]
  - Skin discolouration [Unknown]
  - Fatigue [Unknown]
  - Asthenia [Unknown]
